FAERS Safety Report 13708243 (Version 2)
Quarter: 2017Q3

REPORT INFORMATION
  Report Type: Spontaneous
  Country: US (occurrence: US)
  Receive Date: 20170630
  Receipt Date: 20170726
  Transmission Date: 20171127
  Serious: Yes (Hospitalization, Other)
  Sender: FDA-Public Use
  Company Number: PHEH2017US019338

PATIENT
  Age: 44 Year
  Sex: Male
  Weight: 86.9 kg

DRUGS (6)
  1. TEGRETOL [Suspect]
     Active Substance: CARBAMAZEPINE
     Dosage: 400 MG, QID
     Route: 048
     Dates: start: 20170625
  2. TEGRETOL [Suspect]
     Active Substance: CARBAMAZEPINE
     Dosage: 1100-1200 MG, UNK
     Route: 048
  3. HYOSCYAMINE. [Suspect]
     Active Substance: HYOSCYAMINE
     Indication: DYSPEPSIA
     Dosage: 0.375 MG, BID
     Route: 048
     Dates: start: 2002
  4. TEGRETOL [Suspect]
     Active Substance: CARBAMAZEPINE
     Indication: GENERALISED TONIC-CLONIC SEIZURE
     Dosage: 400 MG, QID
     Route: 048
     Dates: start: 1984, end: 20170618
  5. CIPRO [Suspect]
     Active Substance: CIPROFLOXACIN HYDROCHLORIDE
     Indication: URINARY TRACT INFECTION
     Dosage: UNK
     Route: 048
     Dates: end: 20170618
  6. KEPPRA [Suspect]
     Active Substance: LEVETIRACETAM
     Indication: GENERALISED TONIC-CLONIC SEIZURE
     Dosage: 500 MG, BID
     Route: 048
     Dates: start: 20170619, end: 20170625

REACTIONS (30)
  - Asthenia [Recovered/Resolved]
  - Muscle rigidity [Unknown]
  - Hyponatraemia [Unknown]
  - Personality change [Recovered/Resolved]
  - Urinary tract infection [Unknown]
  - Eye movement disorder [Unknown]
  - Seizure [Recovered/Resolved]
  - Spinal fracture [Unknown]
  - Seizure [Recovered/Resolved]
  - Memory impairment [Unknown]
  - Anticonvulsant drug level increased [Unknown]
  - Pollakiuria [Recovered/Resolved]
  - Catatonia [Unknown]
  - Urinary tract pain [Unknown]
  - Aggression [Recovered/Resolved]
  - Visual impairment [Unknown]
  - Unresponsive to stimuli [Recovered/Resolved]
  - Loss of consciousness [Unknown]
  - Feeling abnormal [Unknown]
  - Bruxism [Unknown]
  - Confusional state [Recovered/Resolved]
  - Amnesia [Unknown]
  - Stress [Unknown]
  - Gait inability [Unknown]
  - Inappropriate antidiuretic hormone secretion [Unknown]
  - Generalised tonic-clonic seizure [Unknown]
  - Dyskinesia [Unknown]
  - Intervertebral disc protrusion [Unknown]
  - Dysarthria [Unknown]
  - Somnolence [Recovered/Resolved]

NARRATIVE: CASE EVENT DATE: 20170618
